FAERS Safety Report 13910334 (Version 1)
Quarter: 2017Q3

REPORT INFORMATION
  Report Type: Spontaneous
  Country: US (occurrence: US)
  Receive Date: 20170828
  Receipt Date: 20170828
  Transmission Date: 20171127
  Serious: Yes (Life-Threatening, Hospitalization, Other)
  Sender: FDA-Public Use
  Company Number: US-G+W LABS-GW2017US000236

PATIENT

DRUGS (1)
  1. ACETAMINOPHEN. [Suspect]
     Active Substance: ACETAMINOPHEN
     Indication: PRODUCT USED FOR UNKNOWN INDICATION
     Dosage: 25 G, UNK
     Route: 065

REACTIONS (4)
  - Intentional overdose [Recovered/Resolved]
  - Hypophosphataemia [Recovered/Resolved]
  - Acute hepatic failure [Recovered/Resolved]
  - Brain oedema [Recovered/Resolved]
